FAERS Safety Report 6274057-X (Version None)
Quarter: 2009Q3

REPORT INFORMATION
  Report Type: 
  Country: None (occurrence: None)
  Receive Date: 20090720
  Receipt Date: 20090716
  Transmission Date: 20100115
  Serious: Yes (Death)
  Sender: FDA-Public Use
  Company Number: HR-ASTRAZENECA-2009SE04997

PATIENT
  Age: 24542 Day
  Sex: Male

DRUGS (3)
  1. NEXIUM [Suspect]
     Indication: PEPTIC ULCER
     Route: 048
     Dates: start: 20090126, end: 20090130
  2. FUROSEMID [Concomitant]
     Route: 048
  3. SPIRONOLACTONE [Concomitant]
     Route: 048

REACTIONS (2)
  - ABDOMINAL PAIN [None]
  - DIARRHOEA [None]
